FAERS Safety Report 12573933 (Version 3)
Quarter: 2016Q4

REPORT INFORMATION
  Report Type: Spontaneous
  Country: GB (occurrence: GB)
  Receive Date: 20160720
  Receipt Date: 20161130
  Transmission Date: 20170207
  Serious: Yes (Hospitalization)
  Sender: FDA-Public Use
  Company Number: GB-TEVA-676640ACC

PATIENT
  Age: 53 Year
  Sex: Male

DRUGS (8)
  1. THIAMINE. [Concomitant]
     Active Substance: THIAMINE
     Dosage: 200 MILLIGRAM DAILY;
     Route: 048
  2. VITAMIN B COMPOUND STRONG [Concomitant]
     Dosage: 2 DOSAGE FORMS DAILY;
     Route: 048
  3. BECLOMETHASONE [Concomitant]
     Active Substance: BECLOMETHASONE
     Dosage: 1000 MICROGRAM DAILY; INHALER
     Route: 055
  4. CARBAMAZEPINE. [Concomitant]
     Active Substance: CARBAMAZEPINE
     Dosage: 400 MILLIGRAM DAILY;
     Route: 048
  5. ESOMEPRAZOLE [Suspect]
     Active Substance: ESOMEPRAZOLE
     Dosage: 20 MILLIGRAM DAILY;
     Route: 048
     Dates: end: 20160519
  6. PREGABALIN. [Concomitant]
     Active Substance: PREGABALIN
     Dosage: 200 MILLIGRAM DAILY;
     Route: 048
  7. ASPIRIN. [Concomitant]
     Active Substance: ASPIRIN
     Dosage: 75 MILLIGRAM DAILY;
     Route: 048
  8. SALBUTAMOL [Concomitant]
     Active Substance: ALBUTEROL
     Dosage: 800 MICROGRAM DAILY; INHALER
     Route: 055

REACTIONS (2)
  - Hyponatraemia [Recovered/Resolved]
  - Fall [Unknown]
